FAERS Safety Report 7669777-6 (Version None)
Quarter: 2011Q3

REPORT INFORMATION
  Report Type: 
  Country: None (occurrence: None)
  Receive Date: 20110808
  Receipt Date: 20110725
  Transmission Date: 20111222
  Serious: Yes (Hospitalization)
  Sender: FDA-Public Use
  Company Number: CA-JNJFOC-20110711202

PATIENT
  Sex: Male
  Weight: 66 kg

DRUGS (3)
  1. REMICADE [Suspect]
     Indication: CROHN'S DISEASE
     Route: 042
     Dates: start: 20090401
  2. BENADRYL [Concomitant]
     Route: 042
  3. SOLU-CORTEF [Concomitant]
     Route: 042

REACTIONS (1)
  - INGUINAL HERNIA [None]
